FAERS Safety Report 7446015-0 (Version None)
Quarter: 2011Q2

REPORT INFORMATION
  Report Type: 
  Country: None (occurrence: None)
  Receive Date: 20110429
  Receipt Date: 20110419
  Transmission Date: 20111010
  Serious: Yes (Death)
  Sender: FDA-Public Use
  Company Number: US-GENZYME-CLOF-1001577

PATIENT
  Age: 50 Year
  Sex: Female

DRUGS (9)
  1. BUSULFAN [Suspect]
     Indication: ACUTE MYELOID LEUKAEMIA
     Dosage: 0.8 MG/KG, QD OVER 2 HOURS, DAYS -7 TO -4
     Route: 042
  2. ACYCLOVIR [Concomitant]
     Indication: PROPHYLAXIS
  3. SIROLIMUS [Concomitant]
     Indication: PROPHYLAXIS AGAINST GRAFT VERSUS HOST DISEASE
     Dosage: STARTING DAY -3
  4. CLOLAR [Suspect]
     Indication: ACUTE MYELOID LEUKAEMIA
     Dosage: 60 MG/M2, QD OVER 1 HOUR, DAYS -6 TO -2
     Route: 042
  5. CLOLAR [Suspect]
     Indication: STEM CELL TRANSPLANT
  6. BUSULFAN [Suspect]
     Indication: STEM CELL TRANSPLANT
  7. TACROLIMUS [Concomitant]
     Indication: PROPHYLAXIS AGAINST GRAFT VERSUS HOST DISEASE
     Dosage: STARTING DAY -3
  8. FLUCONAZOLE [Concomitant]
     Indication: PROPHYLAXIS
  9. CIPROFLOXACIN [Concomitant]
     Indication: PROPHYLAXIS

REACTIONS (1)
  - NEOPLASM MALIGNANT [None]
